FAERS Safety Report 11364367 (Version 1)
Quarter: 2015Q3

REPORT INFORMATION
  Report Type: Spontaneous
  Country: US (occurrence: None)
  Receive Date: 20150810
  Receipt Date: 20150810
  Transmission Date: 20151125
  Serious: No
  Sender: FDA-Public Use
  Company Number: None

PATIENT
  Age: 68 Year
  Sex: Female
  Weight: 68.04 kg

DRUGS (15)
  1. FAMCYCLOVIR OINTMENT [Concomitant]
  2. VITAMIN C [Concomitant]
     Active Substance: ASCORBIC ACID
  3. ONE-A-DAY MULTIPLE VITAMINS [Concomitant]
  4. VITAMIN B-100 COMPLEX [Concomitant]
  5. VALACYCLOVIR 500 MG TEVA [Suspect]
     Active Substance: VALACYCLOVIR HYDROCHLORIDE
     Indication: ORAL HERPES
     Route: 048
     Dates: start: 20141101, end: 20150115
  6. CALCIUM + VITAMIN D [Concomitant]
     Active Substance: CALCIUM\VITAMIN D
  7. FAMCYCLOVIR [Concomitant]
     Active Substance: FAMCICLOVIR
  8. VITAMIN E [Concomitant]
     Active Substance: .ALPHA.-TOCOPHEROL
  9. BIOTIN [Concomitant]
     Active Substance: BIOTIN
  10. MAGNESIUM [Concomitant]
     Active Substance: MAGNESIUM
  11. POTASSIUM [Concomitant]
     Active Substance: POTASSIUM
  12. GRAPE SEED EXTRACT CAPSULES [Concomitant]
  13. ASPERIN [Concomitant]
  14. OMEGA3 CAPSULES [Concomitant]
  15. SELENIUM [Concomitant]
     Active Substance: SELENIUM

REACTIONS (1)
  - Pruritus [None]

NARRATIVE: CASE EVENT DATE: 20141101
